FAERS Safety Report 23506609 (Version 1)
Quarter: 2024Q1

REPORT INFORMATION
  Report Type: Spontaneous
  Country: FR (occurrence: FR)
  Receive Date: 20240209
  Receipt Date: 20240209
  Transmission Date: 20240410
  Serious: Yes (Other)
  Sender: FDA-Public Use
  Company Number: None

PATIENT
  Age: 54 Year
  Sex: Male

DRUGS (20)
  1. ALLOPURINOL [Suspect]
     Active Substance: ALLOPURINOL
     Indication: Product used for unknown indication
     Dosage: 200 MG PER DAY - LONG-TERM TREATMENT
     Route: 048
  2. COMIRNATY (TOZINAMERAN) [Suspect]
     Active Substance: TOZINAMERAN
     Indication: COVID-19 immunisation
     Dosage: 1 DF
     Route: 030
     Dates: start: 202104, end: 202104
  3. MAGNE B6 [Suspect]
     Active Substance: MAGNESIUM\PYRIDOXINE
     Indication: Mineral supplementation
     Dosage: 2 DF, QD, 1 TABLET X 2 PER DAY - LONG-TERM TREATMENT
     Route: 048
  4. MITOMYCIN [Suspect]
     Active Substance: MITOMYCIN
     Indication: Transitional cell carcinoma
     Dosage: UNK
     Route: 043
     Dates: start: 202203, end: 202206
  5. NEORAL [Suspect]
     Active Substance: CYCLOSPORINE
     Indication: Prophylaxis against transplant rejection
     Dosage: 165 MG, QD, 90 MG IN THE MORNING AND 75 MG IN THE EVENING - LONG-TERM TREATMENT
     Route: 048
  6. PANTOPRAZOLE [Suspect]
     Active Substance: PANTOPRAZOLE
     Indication: Product used for unknown indication
     Dosage: 20 MG, QD,  LONG-TERM TREATMENT
     Route: 048
  7. VALCYTE [Suspect]
     Active Substance: VALGANCICLOVIR HYDROCHLORIDE
     Indication: Prophylaxis
     Dosage: 450 MG, QD,  LONG-TERM TREATMENT
     Route: 048
  8. FILGRASTIM [Suspect]
     Active Substance: FILGRASTIM
     Indication: Transitional cell carcinoma
     Dosage: 165 MG, QD, 90 MG IN THE MORNING AND 75 MG IN THE EVENING - LONG-TERM TREATMENT
     Route: 065
  9. IRBESARTAN [Concomitant]
     Active Substance: IRBESARTAN
     Indication: Product used for unknown indication
     Dosage: 150 MG, QD,  IN THE MORNING
     Route: 065
  10. ATOVAQUONE [Concomitant]
     Active Substance: ATOVAQUONE
     Indication: Prophylaxis
     Dosage: 75 MG
     Route: 065
  11. THIAMINE HYDROCHLORIDE [Concomitant]
     Active Substance: THIAMINE HYDROCHLORIDE
     Indication: Transitional cell carcinoma
     Dosage: 250 MG, QD, IN THE MORNING
     Route: 065
  12. CALCIUM CARBONATE [Concomitant]
     Active Substance: CALCIUM CARBONATE
     Indication: Mineral supplementation
     Dosage: 500 MG, QD
     Route: 065
  13. PREDNISONE [Concomitant]
     Active Substance: PREDNISONE
     Indication: Product used for unknown indication
     Dosage: 4 MG
     Route: 065
  14. EVUSHELD [Concomitant]
     Active Substance: CILGAVIMAB\TIXAGEVIMAB
     Dosage: 1 DF
     Route: 030
     Dates: start: 20220530, end: 20220530
  15. HIZENTRA [Concomitant]
     Active Substance: HUMAN IMMUNOGLOBULIN G
     Indication: Product used for unknown indication
     Dosage: 7 G, IN 14 DAY
     Route: 065
  16. INFLUENZA VIRUS VACCINE [Concomitant]
     Active Substance: INFLUENZA VIRUS VACCINE
     Indication: COVID-19
     Dosage: UNK
     Route: 065
     Dates: start: 2021
  17. INNOHEP [Concomitant]
     Active Substance: TINZAPARIN SODIUM
     Indication: Product used for unknown indication
     Dosage: 14000 IU
     Route: 065
  18. LOPERAMIDE [Concomitant]
     Active Substance: LOPERAMIDE
     Indication: Gouty arthritis
     Dosage: 1 DF, TID, MORNING, NOON AND EVENING AND THEN AT EACH
     Route: 065
  19. MIANSERIN [Concomitant]
     Active Substance: MIANSERIN
     Indication: Product used for unknown indication
     Dosage: 1 DF, QD, 1 TABLET IN THE EVENING
     Route: 065
  20. MIRCERA [Concomitant]
     Active Substance: METHOXY POLYETHYLENE GLYCOL-EPOETIN BETA
     Indication: COVID-19 immunisation
     Dosage: 75 MG, IN A MONTH
     Route: 065

REACTIONS (1)
  - Neuropathy peripheral [Recovering/Resolving]

NARRATIVE: CASE EVENT DATE: 20220401
